FAERS Safety Report 9070193 (Version 1)
Quarter: 2013Q1

REPORT INFORMATION
  Report Type: Spontaneous
  Country: AU (occurrence: AU)
  Receive Date: 20130129
  Receipt Date: 20130129
  Transmission Date: 20140127
  Serious: Yes (Disabling)
  Sender: FDA-Public Use
  Company Number: AU-B.I. PHARMACEUTICALS,INC./RIDGEFIELD-2013-AU-00050AU

PATIENT
  Age: 78 None
  Sex: Female

DRUGS (7)
  1. PRADAXA [Suspect]
     Indication: CEREBROVASCULAR ACCIDENT PROPHYLAXIS
     Dosage: 220 MG
     Dates: start: 20110620, end: 201211
  2. PRADAXA [Suspect]
     Indication: ATRIAL FIBRILLATION
  3. GLICLAZIDE [Concomitant]
     Dosage: 120 MG
  4. MONOXIDINE [Concomitant]
     Dosage: 400 MCG
  5. CANDESARTAN HCT [Concomitant]
     Dosage: 32/25MG
  6. FRUSEMIDE [Concomitant]
     Dosage: 80 MG
  7. SPIRONOLACTONE [Concomitant]

REACTIONS (1)
  - Renal impairment [Not Recovered/Not Resolved]
